FAERS Safety Report 16470082 (Version 2)
Quarter: 2019Q3

REPORT INFORMATION
  Report Type: Report from Study
  Country: NL (occurrence: NL)
  Receive Date: 20190624
  Receipt Date: 20190819
  Transmission Date: 20191004
  Serious: Yes (Other)
  Sender: FDA-Public Use
  Company Number: NL-MYLANLABS-2018M1039890

PATIENT
  Age: 31 Year
  Sex: Female
  Weight: 80 kg

DRUGS (2)
  1. CITALOPRAM [Concomitant]
     Active Substance: CITALOPRAM HYDROBROMIDE
     Indication: PRODUCT USED FOR UNKNOWN INDICATION
     Dosage: 1 DF, QD
     Route: 048
  2. GLATIRAMEERACETAAT MYLAN 40 MG/ML [Suspect]
     Active Substance: GLATIRAMER ACETATE
     Indication: MULTIPLE SCLEROSIS
     Dosage: 40 MILLIGRAM, 3XW
     Route: 058
     Dates: start: 20180705, end: 20190724

REACTIONS (11)
  - Influenza like illness [Recovered/Resolved]
  - Injection site reaction [Recovered/Resolved]
  - Dizziness [Recovered/Resolved]
  - Feeling hot [Recovered/Resolved]
  - Multiple sclerosis [Not Recovered/Not Resolved]
  - Nausea [Recovered/Resolved]
  - Injection site coldness [Recovered/Resolved]
  - Injection site discolouration [Recovered/Resolved]
  - Limb discomfort [Not Recovered/Not Resolved]
  - Fatigue [Recovered/Resolved]
  - Injection site erythema [Recovered/Resolved]

NARRATIVE: CASE EVENT DATE: 201806
